FAERS Safety Report 9252505 (Version 2)
Quarter: 2013Q3

REPORT INFORMATION
  Report Type: Spontaneous
  Country: US (occurrence: US)
  Receive Date: 20130424
  Receipt Date: 20130701
  Transmission Date: 20140515
  Serious: Yes (Hospitalization)
  Sender: FDA-Public Use
  Company Number: US-B.I. PHARMACEUTICALS,INC./RIDGEFIELD-2013-BI-10176BP

PATIENT
  Age: 49 Year
  Sex: Female
  Weight: 119.75 kg

DRUGS (7)
  1. TRADJENTA [Suspect]
     Indication: DIABETES MELLITUS
     Dates: start: 20130315, end: 20130403
  2. AMLODIPINE [Concomitant]
     Indication: HYPERTENSION
     Dosage: 10 MG
     Dates: start: 20101006
  3. ASPIRIN [Concomitant]
     Indication: THROMBOSIS PROPHYLAXIS
     Dosage: 81 MG
     Dates: start: 20110207
  4. CLONIDINE [Concomitant]
     Indication: HYPERTENSION
     Dosage: 0.1 MG
     Dates: start: 20101006
  5. PRAVASTATINE [Concomitant]
     Indication: HYPERLIPIDAEMIA
     Dosage: 40 MG
     Dates: start: 20101006
  6. LEVOTHYROXINE [Concomitant]
     Indication: HYPOTHYROIDISM
     Dosage: 75 MCG
     Dates: start: 20110207
  7. GABAPENTIN [Concomitant]
     Indication: BACK PAIN
     Dates: start: 20130326, end: 20130403

REACTIONS (1)
  - Angioedema [Recovered/Resolved]
